FAERS Safety Report 8482120-8 (Version None)
Quarter: 2012Q3

REPORT INFORMATION
  Report Type: 
  Country: None (occurrence: None)
  Receive Date: 20120702
  Receipt Date: 20120625
  Transmission Date: 20120928
  Serious: Yes (Hospitalization)
  Sender: FDA-Public Use
  Company Number: US-UCBSA-060449

PATIENT
  Age: 24 Year
  Sex: Male
  Weight: 79.37 kg

DRUGS (11)
  1. VITAMIN D [Concomitant]
     Indication: CROHN'S DISEASE
  2. PRILOSEC [Concomitant]
     Indication: CROHN'S DISEASE
  3. FLAGYL [Concomitant]
     Indication: CROHN'S DISEASE
     Dates: start: 20111201
  4. PREDNISONE [Concomitant]
     Indication: CROHN'S DISEASE
     Dates: start: 20111201
  5. AZATHIOPRINE [Concomitant]
     Indication: CROHN'S DISEASE
     Dates: start: 20111101
  6. CIMZIA [Suspect]
     Indication: CROHN'S DISEASE
     Route: 058
     Dates: start: 20110412
  7. CIMZIA [Suspect]
     Route: 058
     Dates: start: 20101019, end: 20101116
  8. FISH OIL [Concomitant]
     Indication: CROHN'S DISEASE
  9. CIMZIA [Suspect]
     Route: 058
     Dates: start: 20101214, end: 20110329
  10. CIPROFLOXACIN HCL [Concomitant]
     Indication: CROHN'S DISEASE
     Dates: start: 20111201
  11. PROBIOTICS [Concomitant]
     Indication: CROHN'S DISEASE

REACTIONS (2)
  - ABDOMINAL ABSCESS [None]
  - INTESTINAL STENOSIS [None]
